FAERS Safety Report 7148983-3 (Version None)
Quarter: 2010Q4

REPORT INFORMATION
  Report Type: 
  Country: None (occurrence: None)
  Receive Date: 20101209
  Receipt Date: 20101130
  Transmission Date: 20110411
  Serious: Yes (Other)
  Sender: FDA-Public Use
  Company Number: US-JNJCH-2010027734

PATIENT
  Age: 42 Year
  Sex: Female
  Weight: 85.7 kg

DRUGS (1)
  1. ROGAINE [Suspect]
     Indication: ALOPECIA
     Dosage: TEXT:FOLLOWED DIRECTIONS; TWO TIMES PER DAY
     Route: 061
     Dates: start: 20101025, end: 20101110

REACTIONS (2)
  - APPLICATION SITE VESICLES [None]
  - OVERDOSE [None]
